FAERS Safety Report 25403478 (Version 2)
Quarter: 2025Q2

REPORT INFORMATION
  Report Type: Report from Study
  Country: US (occurrence: US)
  Receive Date: 20250605
  Receipt Date: 20250613
  Transmission Date: 20250717
  Serious: Yes (Hospitalization, Other)
  Sender: ABBVIE
  Company Number: US-ABBVIE-6308529

PATIENT
  Age: 52 Year
  Sex: Female
  Weight: 80.285 kg

DRUGS (1)
  1. IMBRUVICA [Suspect]
     Active Substance: IBRUTINIB
     Indication: Chronic lymphocytic leukaemia
     Dosage: FORM STRENGTH: 420 MILLIGRAM
     Route: 048
     Dates: start: 202211, end: 20250401

REACTIONS (8)
  - Retinal detachment [Unknown]
  - Cerebrovascular accident [Recovered/Resolved]
  - Balance disorder [Unknown]
  - Transient ischaemic attack [Unknown]
  - Neoplasm skin [Unknown]
  - Movement disorder [Unknown]
  - Diabetes mellitus [Unknown]
  - Blood glucose abnormal [Unknown]

NARRATIVE: CASE EVENT DATE: 20240508
